FAERS Safety Report 12738551 (Version 4)
Quarter: 2019Q2

REPORT INFORMATION
  Report Type: Report from Study
  Country: US (occurrence: US)
  Receive Date: 20160912
  Receipt Date: 20190419
  Transmission Date: 20190711
  Serious: No
  Sender: FDA-Public Use
  Company Number: US-SA-2016SA139921

PATIENT
  Age: 71 Year
  Sex: Female

DRUGS (4)
  1. PRADAXA [Suspect]
     Active Substance: DABIGATRAN ETEXILATE MESYLATE
     Dosage: UNK UNK,UNK
     Route: 065
  2. SOLOSTAR [Concomitant]
     Active Substance: DEVICE
  3. INSULIN GLARGINE [Suspect]
     Active Substance: INSULIN GLARGINE
     Indication: TYPE 2 DIABETES MELLITUS
     Dosage: 300 MG, HS
     Route: 058
     Dates: start: 20190411
  4. INSULIN GLARGINE [Concomitant]
     Active Substance: INSULIN GLARGINE
     Dosage: UNK

REACTIONS (3)
  - Nervousness [Unknown]
  - Blood glucose fluctuation [Unknown]
  - Injection site haemorrhage [Unknown]
